FAERS Safety Report 8842357 (Version 2)
Quarter: 2012Q4

REPORT INFORMATION
  Report Type: 
  Country: IT (occurrence: IT)
  Receive Date: 20121016
  Receipt Date: 20121227
  Transmission Date: 20130627
  Serious: Yes (Disabling)
  Sender: FDA-Public Use
  Company Number: IT-BAYER-2012-103849

PATIENT
  Age: 83 Year
  Sex: Female

DRUGS (1)
  1. NEXAVAR [Suspect]
     Indication: LIVER CELL CARCINOMA RESECTABLE
     Dosage: Daily dose 400 mg
     Route: 048
     Dates: start: 20120522, end: 20120914

REACTIONS (5)
  - Cognitive disorder [Recovering/Resolving]
  - Memory impairment [Recovering/Resolving]
  - Disorientation [Recovering/Resolving]
  - Unevaluable event [Recovering/Resolving]
  - Apathy [Recovering/Resolving]
